FAERS Safety Report 10021680 (Version 2)
Quarter: 2014Q1

REPORT INFORMATION
  Report Type: Spontaneous
  Country: US (occurrence: US)
  Receive Date: 20140319
  Receipt Date: 20140327
  Transmission Date: 20141002
  Serious: Yes (Hospitalization)
  Sender: FDA-Public Use
  Company Number: US-BAXTER-2014BAX013974

PATIENT
  Sex: Female
  Weight: 53.64 kg

DRUGS (1)
  1. DIANEAL LOW CALCIUM (ULTRABAG) [Suspect]
     Indication: RENAL FAILURE CHRONIC
     Route: 033
     Dates: start: 201212

REACTIONS (2)
  - Back pain [Not Recovered/Not Resolved]
  - Hyperkalaemia [Recovered/Resolved]
